FAERS Safety Report 6235030-0 (Version None)
Quarter: 2009Q2

REPORT INFORMATION
  Report Type: 
  Country: None (occurrence: None)
  Receive Date: 20090618
  Receipt Date: 20090608
  Transmission Date: 20091009
  Serious: Yes (Hospitalization, Other)
  Sender: FDA-Public Use
  Company Number: GB-GILEAD-2009-0021341

PATIENT
  Sex: Male

DRUGS (3)
  1. ATRIPLA [Suspect]
     Indication: HIV INFECTION
     Dates: start: 20081107
  2. TRUVADA [Concomitant]
     Indication: HIV INFECTION
     Dates: start: 20080515, end: 20081107
  3. EFAVIRENZ [Concomitant]
     Indication: HIV INFECTION
     Dates: start: 20080515, end: 20081107

REACTIONS (4)
  - ACUTE HEPATIC FAILURE [None]
  - LIVER TRANSPLANT [None]
  - OEDEMA PERIPHERAL [None]
  - PORTAL HYPERTENSION [None]
